FAERS Safety Report 4314909-0 (Version None)
Quarter: 2004Q1

REPORT INFORMATION
  Report Type: 
  Country: None (occurrence: None)
  Receive Date: 20040310
  Receipt Date: 20040310
  Transmission Date: 20041129
  Serious: No
  Sender: FDA-Public Use
  Company Number: None

PATIENT
  Age: 28 Year
  Sex: Female
  Weight: 64.8644 kg

DRUGS (4)
  1. LEXAPRO [Suspect]
     Indication: ANXIETY
     Dosage: 10 MG 1X PER DAY
     Dates: start: 20021101
  2. LEXAPRO [Suspect]
     Indication: DEPRESSION
     Dosage: 10 MG 1X PER DAY
     Dates: start: 20021101
  3. LEXAPRO [Suspect]
     Indication: ANXIETY
     Dosage: 10 MG 1X PER DAY
     Dates: start: 20040224
  4. LEXAPRO [Suspect]
     Indication: DEPRESSION
     Dosage: 10 MG 1X PER DAY
     Dates: start: 20040224

REACTIONS (7)
  - BRUXISM [None]
  - DIZZINESS [None]
  - FATIGUE [None]
  - HEADACHE [None]
  - NERVOUSNESS [None]
  - TINNITUS [None]
  - WEIGHT INCREASED [None]
